FAERS Safety Report 9850279 (Version 2)
Quarter: 2014Q1

REPORT INFORMATION
  Report Type: Spontaneous
  Country: FR (occurrence: FR)
  Receive Date: 20140128
  Receipt Date: 20140226
  Transmission Date: 20141002
  Serious: Yes (Hospitalization)
  Sender: FDA-Public Use
  Company Number: FR-GLAXOSMITHKLINE-B0961650A

PATIENT
  Age: 3 Year
  Sex: Female
  Weight: 10.8 kg

DRUGS (4)
  1. LAMICTAL [Suspect]
     Indication: EPILEPSY
     Route: 048
     Dates: start: 20131003, end: 20140113
  2. URBANYL [Concomitant]
     Dosage: 5MG PER DAY
     Route: 048
     Dates: start: 20131003
  3. VALIUM [Concomitant]
     Indication: CONVULSION
     Dates: start: 201111
  4. TEGRETOL [Concomitant]
     Dates: start: 20111221

REACTIONS (8)
  - Urticaria [Recovered/Resolved]
  - Face oedema [Recovered/Resolved]
  - Pharyngitis [Recovered/Resolved]
  - Rash [Recovered/Resolved]
  - Lymphadenopathy [Unknown]
  - Eyelid oedema [Recovered/Resolved]
  - Aphthous stomatitis [Unknown]
  - Drug reaction with eosinophilia and systemic symptoms [Recovered/Resolved]
